FAERS Safety Report 6119048-4 (Version None)
Quarter: 2009Q1

REPORT INFORMATION
  Report Type: 
  Country: None (occurrence: None)
  Receive Date: 20090316
  Receipt Date: 20090305
  Transmission Date: 20090719
  Serious: Yes (Life-Threatening)
  Sender: FDA-Public Use
  Company Number: FR-JNJFOC-20090301449

PATIENT
  Age: 11 Year
  Sex: Male
  Weight: 44.5 kg

DRUGS (3)
  1. REMICADE [Suspect]
     Route: 042
  2. REMICADE [Suspect]
     Indication: CROHN'S DISEASE
     Dosage: 2 DOSES TOTAL
     Route: 042
  3. ZYRTEC [Concomitant]
     Indication: PREMEDICATION

REACTIONS (5)
  - CYANOSIS [None]
  - DYSPNOEA [None]
  - FACE OEDEMA [None]
  - INFUSION RELATED REACTION [None]
  - LOCALISED OEDEMA [None]
